FAERS Safety Report 4724617-X (Version None)
Quarter: 2005Q3

REPORT INFORMATION
  Report Type: 
  Country: None (occurrence: None)
  Receive Date: 20050726
  Receipt Date: 20050712
  Transmission Date: 20060218
  Serious: Yes (Other)
  Sender: FDA-Public Use
  Company Number: US-GLAXOSMITHKLINE-A0567142A

PATIENT
  Age: 72 Year
  Sex: Female

DRUGS (2)
  1. CITRUCEL CLEAR MIX [Suspect]
     Route: 048
  2. CITRUCEL REGULAR SUSPENSION [Suspect]
     Route: 048

REACTIONS (9)
  - ABDOMINAL PAIN UPPER [None]
  - ASTHENIA [None]
  - FEELING ABNORMAL [None]
  - HEADACHE [None]
  - HYPOGLYCAEMIA [None]
  - MENTAL IMPAIRMENT [None]
  - SEDATION [None]
  - SLUGGISHNESS [None]
  - STOMACH DISCOMFORT [None]
